FAERS Safety Report 9110170 (Version 2)
Quarter: 2013Q1

REPORT INFORMATION
  Report Type: Spontaneous
  Country: US (occurrence: US)
  Receive Date: 20130222
  Receipt Date: 20130228
  Transmission Date: 20140127
  Serious: Yes (Hospitalization)
  Sender: FDA-Public Use
  Company Number: US-SANOFI-AVENTIS-2013SA014246

PATIENT
  Sex: Male

DRUGS (4)
  1. LANTUS SOLOSTAR [Suspect]
     Dosage: 18 UNITS AND 25 UNITS
     Route: 058
  2. SOLOSTAR [Suspect]
  3. APIDRA SOLOSTAR [Suspect]
     Dosage: WITH MEALS DOSE:20 UNIT(S)
     Route: 058
  4. SOLOSTAR [Suspect]

REACTIONS (1)
  - Bronchitis [Recovering/Resolving]
